FAERS Safety Report 18195411 (Version 1)
Quarter: 2020Q3

REPORT INFORMATION
  Report Type: Spontaneous
  Country: DE (occurrence: DE)
  Receive Date: 20200826
  Receipt Date: 20200826
  Transmission Date: 20201103
  Serious: Yes (Other)
  Sender: FDA-Public Use
  Company Number: DE-TEVA-2020-DE-1817832

PATIENT
  Age: 77 Year
  Sex: Male

DRUGS (10)
  1. PREDNISOLONE. [Suspect]
     Active Substance: PREDNISOLONE
     Indication: IMMUNOSUPPRESSANT DRUG THERAPY
     Dosage: FOLLOWED BY LOW?DOSE 5?7.5 MG/DAY
     Route: 065
  2. AZATHIOPRINE. [Suspect]
     Active Substance: AZATHIOPRINE
     Indication: IMMUNOSUPPRESSANT DRUG THERAPY
     Dosage: 150 MILLIGRAM DAILY;
     Route: 065
     Dates: start: 201012, end: 201110
  3. CYCLOPHOSPHAMIDE. [Suspect]
     Active Substance: CYCLOPHOSPHAMIDE
     Indication: IMMUNOSUPPRESSANT DRUG THERAPY
     Dosage: 2CYCLES, CUMULATIVE DOSE 3.6 G
     Route: 065
     Dates: start: 201303, end: 201303
  4. PREDNISOLONE. [Suspect]
     Active Substance: PREDNISOLONE
     Indication: PEMPHIGUS
     Dosage: INITIAL DOSE 1 MG/KG/BODY WEIGHT (BW), ADDITIONAL INFO: CONTINUED AT REDUCED DOSE
     Route: 065
     Dates: start: 201012
  5. AZATHIOPRINE. [Suspect]
     Active Substance: AZATHIOPRINE
     Indication: PEMPHIGUS
  6. MYCOPHENOLATE MOFETIL. [Suspect]
     Active Substance: MYCOPHENOLATE MOFETIL
     Indication: IMMUNOSUPPRESSANT DRUG THERAPY
     Dosage: 2 GRAM DAILY;
     Route: 065
     Dates: start: 201111, end: 201302
  7. MYCOPHENOLATE MOFETIL. [Suspect]
     Active Substance: MYCOPHENOLATE MOFETIL
     Indication: PEMPHIGUS
     Dosage: 2.5 GRAM DAILY;
     Route: 065
     Dates: start: 201304, end: 201803
  8. RITUXIMAB. [Suspect]
     Active Substance: RITUXIMAB
     Indication: PEMPHIGUS
     Dosage: 10 CYCLES; INFUSION
     Route: 065
     Dates: start: 201506, end: 201512
  9. CYCLOPHOSPHAMIDE. [Suspect]
     Active Substance: CYCLOPHOSPHAMIDE
     Indication: PEMPHIGUS
  10. RITUXIMAB. [Suspect]
     Active Substance: RITUXIMAB
     Indication: IMMUNOSUPPRESSANT DRUG THERAPY
     Dosage: TWO CYCLES AS INDUCTION THERAPY
     Route: 065
     Dates: start: 201404

REACTIONS (1)
  - Oropharyngeal squamous cell carcinoma [Recovered/Resolved]

NARRATIVE: CASE EVENT DATE: 20180209
